FAERS Safety Report 6994539-2 (Version None)
Quarter: 2010Q3

REPORT INFORMATION
  Report Type: 
  Country: None (occurrence: None)
  Receive Date: 20100917
  Receipt Date: 20100908
  Transmission Date: 20110219
  Serious: Yes (Hospitalization)
  Sender: FDA-Public Use
  Company Number: US-AMGEN-QUU432719

PATIENT
  Sex: Male
  Weight: 120.3 kg

DRUGS (4)
  1. ENBREL [Suspect]
     Indication: RHEUMATOID ARTHRITIS
     Route: 058
     Dates: start: 20050328, end: 20100801
  2. METHOTREXATE [Concomitant]
  3. NAPROSYN [Concomitant]
  4. PREDNISONE [Concomitant]

REACTIONS (5)
  - ARTHRALGIA [None]
  - HIP ARTHROPLASTY [None]
  - KNEE ARTHROPLASTY [None]
  - KNEE OPERATION [None]
  - RHEUMATOID ARTHRITIS [None]
